FAERS Safety Report 13439122 (Version 1)
Quarter: 2017Q2

REPORT INFORMATION
  Report Type: Spontaneous
  Country: US (occurrence: US)
  Receive Date: 20170413
  Receipt Date: 20170413
  Transmission Date: 20170830
  Serious: No
  Sender: FDA-Public Use
  Company Number: US-ROCHE-630944

PATIENT
  Sex: Female
  Weight: 59.9 kg

DRUGS (8)
  1. XENICAL [Suspect]
     Active Substance: ORLISTAT
     Route: 048
  2. MICROKLIST [Concomitant]
     Dosage: DRUG: MICROK; FREQUENCY: Q AM
     Route: 048
  3. BONIVA [Concomitant]
     Active Substance: IBANDRONATE SODIUM
     Dosage: FREQUENCY: Q MONTH
     Route: 048
  4. VALIUM [Concomitant]
     Active Substance: DIAZEPAM
     Indication: ANXIETY
     Dosage: FREQUENCY: Q HR
     Route: 048
  5. XENICAL [Suspect]
     Active Substance: ORLISTAT
     Indication: WEIGHT CONTROL
     Route: 048
  6. BONIVA [Concomitant]
     Active Substance: IBANDRONATE SODIUM
     Indication: OSTEOPENIA
     Dosage: FREQUENCY: Q MONTH
     Route: 048
     Dates: start: 2005, end: 2006
  7. FOSAMAX [Concomitant]
     Active Substance: ALENDRONATE SODIUM
     Indication: OSTEOPENIA
     Dosage: DOSE: 70 (UNITS NOT REPORTED); FREQUENCY: Q WK
     Route: 048
     Dates: start: 2005, end: 2006
  8. LEVOXYL [Concomitant]
     Active Substance: LEVOTHYROXINE SODIUM
     Indication: HYPOTHYROIDISM
     Route: 048

REACTIONS (2)
  - Weight loss poor [Unknown]
  - Diarrhoea [Unknown]

NARRATIVE: CASE EVENT DATE: 2009
